FAERS Safety Report 6213144-9 (Version None)
Quarter: 2009Q2

REPORT INFORMATION
  Report Type: 
  Country: None (occurrence: None)
  Receive Date: 20090528
  Receipt Date: 20090415
  Transmission Date: 20091009
  Serious: No
  Sender: FDA-Public Use
  Company Number: MC200900143

PATIENT

DRUGS (2)
  1. CLEVIPREX [Suspect]
  2. INSULIN [Suspect]
     Route: 042

REACTIONS (1)
  - BLOOD GLUCOSE INCREASED [None]
